FAERS Safety Report 7280783-6 (Version None)
Quarter: 2011Q1

REPORT INFORMATION
  Report Type: 
  Country: None (occurrence: None)
  Receive Date: 20110208
  Receipt Date: 20110125
  Transmission Date: 20110831
  Serious: Yes (Other)
  Sender: FDA-Public Use
  Company Number: US-ROCHE-757929

PATIENT
  Sex: Female
  Weight: 61.2 kg

DRUGS (1)
  1. ACTEMRA [Suspect]
     Dosage: FORM: INFUSION
     Route: 042
     Dates: start: 20101221

REACTIONS (4)
  - DIZZINESS [None]
  - ABDOMINAL PAIN UPPER [None]
  - LUNG INFECTION [None]
  - DYSKINESIA [None]
